FAERS Safety Report 8178765-5 (Version None)
Quarter: 2012Q1

REPORT INFORMATION
  Report Type: 
  Country: None (occurrence: None)
  Receive Date: 20120301
  Receipt Date: 20120301
  Transmission Date: 20120608
  Serious: Yes (Life-Threatening)
  Sender: FDA-Public Use
  Company Number: None

PATIENT
  Age: 60 Year
  Sex: Female
  Weight: 99.79 kg

DRUGS (1)
  1. REMICADE [Suspect]
     Indication: RHEUMATOID ARTHRITIS
     Dosage: DON'T KNOW--WAS AT INFUSION
     Route: 041
     Dates: start: 20100110, end: 20100910

REACTIONS (2)
  - URTICARIA [None]
  - THYROID NEOPLASM [None]
